FAERS Safety Report 5747293-6 (Version None)
Quarter: 2008Q2

REPORT INFORMATION
  Report Type: 
  Country: None (occurrence: None)
  Receive Date: 20080523
  Receipt Date: 20080513
  Transmission Date: 20081010
  Serious: Yes (Other)
  Sender: FDA-Public Use
  Company Number: US-JNJFOC-20071203560

PATIENT
  Sex: Male

DRUGS (16)
  1. REMICADE [Suspect]
     Route: 042
  2. REMICADE [Suspect]
     Route: 042
  3. REMICADE [Suspect]
     Route: 042
  4. REMICADE [Suspect]
     Dosage: 2ND DOSE
     Route: 042
  5. REMICADE [Suspect]
     Indication: RHEUMATOID ARTHRITIS
     Dosage: WEEKS 0, 2, 6, THEN ONCE EVERY 8 WEEKS
     Route: 042
  6. ARANESP [Concomitant]
  7. FLOVENT [Concomitant]
  8. THEOPHYLLINE [Concomitant]
  9. CALCIUM + VITAMIN D [Concomitant]
  10. ADVAIR DISKUS 100/50 [Concomitant]
  11. COZAAR [Concomitant]
  12. NEXIUM [Concomitant]
  13. SPIRIVA [Concomitant]
  14. ASPIRIN [Concomitant]
  15. MULTI-VITAMIN [Concomitant]
  16. BENADRYL [Concomitant]
     Indication: PREMEDICATION

REACTIONS (1)
  - LUNG NEOPLASM MALIGNANT [None]
